FAERS Safety Report 5997553-9 (Version None)
Quarter: 2008Q4

REPORT INFORMATION
  Report Type: 
  Country: None (occurrence: None)
  Receive Date: 20081212
  Receipt Date: 20081117
  Transmission Date: 20090506
  Serious: No
  Sender: FDA-Public Use
  Company Number: US-ABBOTT-08P-163-0488059-00

PATIENT
  Sex: Male
  Weight: 47.67 kg

DRUGS (2)
  1. HUMIRA [Suspect]
     Indication: CROHN'S DISEASE
     Route: 058
     Dates: start: 20071227
  2. METHOTREXATE [Concomitant]
     Indication: CROHN'S DISEASE
     Route: 058

REACTIONS (3)
  - INJECTION SITE NODULE [None]
  - INJECTION SITE PAPULE [None]
  - INJECTION SITE RASH [None]
